FAERS Safety Report 15943176 (Version 9)
Quarter: 2023Q2

REPORT INFORMATION
  Report Type: Spontaneous
  Country: US (occurrence: None)
  Receive Date: 20190210
  Receipt Date: 20230427
  Transmission Date: 20230721
  Serious: Yes (Death, Hospitalization, Other)
  Sender: FDA-Public Use
  Company Number: 2018SF34566

PATIENT
  Age: 20074 Day
  Sex: Female
  Weight: 97.5 kg

DRUGS (59)
  1. NEXIUM [Suspect]
     Active Substance: ESOMEPRAZOLE MAGNESIUM
     Indication: Gastrooesophageal reflux disease
     Route: 048
     Dates: start: 200612, end: 201008
  2. NEXIUM [Suspect]
     Active Substance: ESOMEPRAZOLE MAGNESIUM
     Indication: Gastrooesophageal reflux disease
     Route: 048
     Dates: start: 200612, end: 201008
  3. NEXIUM [Suspect]
     Active Substance: ESOMEPRAZOLE MAGNESIUM
     Indication: Gastrooesophageal reflux disease
     Route: 048
     Dates: start: 200606, end: 201305
  4. NEXIUM [Suspect]
     Active Substance: ESOMEPRAZOLE MAGNESIUM
     Indication: Gastrooesophageal reflux disease
     Route: 048
     Dates: start: 200606, end: 201305
  5. NEXIUM [Suspect]
     Active Substance: ESOMEPRAZOLE MAGNESIUM
     Indication: Gastrooesophageal reflux disease
     Route: 048
     Dates: start: 20060615, end: 20130513
  6. NEXIUM [Suspect]
     Active Substance: ESOMEPRAZOLE MAGNESIUM
     Indication: Gastrooesophageal reflux disease
     Route: 048
     Dates: start: 20060615, end: 20130513
  7. NEXIUM [Suspect]
     Active Substance: ESOMEPRAZOLE MAGNESIUM
     Indication: Gastrooesophageal reflux disease
     Route: 048
  8. NEXIUM [Suspect]
     Active Substance: ESOMEPRAZOLE MAGNESIUM
     Indication: Gastrooesophageal reflux disease
     Route: 048
  9. NEXIUM 24HR [Suspect]
     Active Substance: ESOMEPRAZOLE MAGNESIUM
     Indication: Gastrooesophageal reflux disease
     Route: 048
  10. NEXIUM 24HR [Suspect]
     Active Substance: ESOMEPRAZOLE MAGNESIUM
     Indication: Gastrooesophageal reflux disease
     Route: 048
  11. NEXIUM I.V. [Suspect]
     Active Substance: ESOMEPRAZOLE SODIUM
     Indication: Gastrooesophageal reflux disease
     Route: 042
  12. NEXIUM I.V. [Suspect]
     Active Substance: ESOMEPRAZOLE SODIUM
     Indication: Gastrooesophageal reflux disease
     Route: 042
  13. PRILOSEC [Suspect]
     Active Substance: OMEPRAZOLE MAGNESIUM
     Indication: Gastrooesophageal reflux disease
     Route: 048
  14. PRILOSEC [Suspect]
     Active Substance: OMEPRAZOLE MAGNESIUM
     Indication: Gastrooesophageal reflux disease
     Dosage: GENERIC
     Route: 048
     Dates: start: 2004, end: 2016
  15. PRILOSEC OTC [Suspect]
     Active Substance: OMEPRAZOLE MAGNESIUM
     Indication: Gastrooesophageal reflux disease
     Route: 048
     Dates: start: 20081022
  16. PREVACID [Suspect]
     Active Substance: LANSOPRAZOLE
     Indication: Gastrooesophageal reflux disease
  17. PREVACID [Suspect]
     Active Substance: LANSOPRAZOLE
     Indication: Gastrooesophageal reflux disease
     Dosage: GENERIC
  18. PREVACID 24 HR [Suspect]
     Active Substance: LANSOPRAZOLE
  19. PROTONIX [Suspect]
     Active Substance: PANTOPRAZOLE SODIUM
     Indication: Gastrooesophageal reflux disease
     Dates: start: 2005, end: 2007
  20. PROTONIX [Suspect]
     Active Substance: PANTOPRAZOLE SODIUM
     Indication: Gastrooesophageal reflux disease
     Dates: start: 2005, end: 2007
  21. PROTONIX [Suspect]
     Active Substance: PANTOPRAZOLE SODIUM
     Indication: Gastrooesophageal reflux disease
     Dates: start: 201305, end: 201711
  22. PROTONIX [Suspect]
     Active Substance: PANTOPRAZOLE SODIUM
     Indication: Gastrooesophageal reflux disease
     Dates: start: 201305, end: 201711
  23. PROTONIX [Suspect]
     Active Substance: PANTOPRAZOLE SODIUM
     Indication: Gastrooesophageal reflux disease
     Dosage: GENERIC-40MG
     Dates: start: 201312, end: 201708
  24. PROTONIX [Suspect]
     Active Substance: PANTOPRAZOLE SODIUM
     Indication: Gastrooesophageal reflux disease
     Dosage: GENERIC-40MG
     Dates: start: 201312, end: 201708
  25. COZAAR [Concomitant]
     Active Substance: LOSARTAN POTASSIUM
  26. PREDNISONE [Concomitant]
     Active Substance: PREDNISONE
  27. AZATHIOPRINE [Concomitant]
     Active Substance: AZATHIOPRINE
  28. SIMVASTATIN [Concomitant]
     Active Substance: SIMVASTATIN
  29. CYCLOBENZAPRINE [Concomitant]
     Active Substance: CYCLOBENZAPRINE
  30. ATENOLOL [Concomitant]
     Active Substance: ATENOLOL
  31. LISINOPRIL [Concomitant]
     Active Substance: LISINOPRIL
  32. AMLODIPINE [Concomitant]
     Active Substance: AMLODIPINE BESYLATE
  33. PENICILLIN V POTASSIUM [Concomitant]
     Active Substance: PENICILLIN V POTASSIUM
  34. VALSARTAN [Concomitant]
     Active Substance: VALSARTAN
  35. DULOXETINE [Concomitant]
     Active Substance: DULOXETINE
  36. METOPROLOL [Concomitant]
     Active Substance: METOPROLOL
  37. FLUTICASONE [Concomitant]
     Active Substance: FLUTICASONE
  38. HYZAAR [Concomitant]
     Active Substance: HYDROCHLOROTHIAZIDE\LOSARTAN POTASSIUM
     Indication: Hypertension
  39. LUNESTA [Concomitant]
     Active Substance: ESZOPICLONE
     Indication: Insomnia
  40. FAMOTIDINE [Concomitant]
     Active Substance: FAMOTIDINE
  41. PEPCID [Concomitant]
     Active Substance: FAMOTIDINE
  42. HYDROCHLOROTHIAZIDE [Concomitant]
     Active Substance: HYDROCHLOROTHIAZIDE
  43. DIOVAN [Concomitant]
     Active Substance: VALSARTAN
  44. AZITHROMYCIN [Concomitant]
     Active Substance: AZITHROMYCIN
  45. CEPHALEXIN [Concomitant]
     Active Substance: CEPHALEXIN
  46. ONDANSETRON [Concomitant]
     Active Substance: ONDANSETRON
  47. PROMETHAZINE [Concomitant]
     Active Substance: PROMETHAZINE HYDROCHLORIDE
  48. POTASSIUM CHLORIDE [Concomitant]
     Active Substance: POTASSIUM CHLORIDE
  49. TRAMADOL [Concomitant]
     Active Substance: TRAMADOL
  50. DOXYCYCLINE [Concomitant]
     Active Substance: DOXYCYCLINE
  51. GABAPENTIN [Concomitant]
     Active Substance: GABAPENTIN
  52. CYANOCOBALAMIN [Concomitant]
     Active Substance: CYANOCOBALAMIN
  53. ASACOL [Concomitant]
     Active Substance: MESALAMINE
  54. VICODIN [Concomitant]
     Active Substance: ACETAMINOPHEN\HYDROCODONE BITARTRATE
  55. FERROUS SULFATE [Concomitant]
     Active Substance: FERROUS SULFATE
  56. CYMBALTA [Concomitant]
     Active Substance: DULOXETINE HYDROCHLORIDE
  57. IPRATROPIUM [Concomitant]
     Active Substance: IPRATROPIUM
  58. LEVAQUIN [Concomitant]
     Active Substance: LEVOFLOXACIN
  59. SUCRALFATE [Concomitant]
     Active Substance: SUCRALFATE

REACTIONS (8)
  - End stage renal disease [Fatal]
  - Acute kidney injury [Not Recovered/Not Resolved]
  - Chronic kidney disease [Not Recovered/Not Resolved]
  - Renal failure [Unknown]
  - Renal injury [Unknown]
  - Nephrogenic anaemia [Unknown]
  - Hyperparathyroidism secondary [Unknown]
  - Gastrooesophageal reflux disease [Not Recovered/Not Resolved]

NARRATIVE: CASE EVENT DATE: 20121001
